FAERS Safety Report 17515482 (Version 1)
Quarter: 2020Q1

REPORT INFORMATION
  Report Type: Report from Study
  Country: GB (occurrence: GB)
  Receive Date: 20200309
  Receipt Date: 20200309
  Transmission Date: 20200409
  Serious: Yes (Hospitalization)
  Sender: FDA-Public Use
  Company Number: GB-ASPEN-GLO2020GB002263

PATIENT
  Age: 75 Year
  Sex: Female

DRUGS (64)
  1. VELCADE [Suspect]
     Active Substance: BORTEZOMIB
     Dosage: CYCLE 9 AND BEYOND: ON DAYS 1, 8, 15 AND 22 OF 35 DAY CYCLE (1.05 MG)
     Route: 058
     Dates: start: 20190705, end: 20191018
  2. VELCADE [Suspect]
     Active Substance: BORTEZOMIB
     Dosage: CYCLE 1-8: ON DAYS 1, 4, 8 AND 11 OF 21 DAY CYCLE (1.45 MG)
     Route: 058
     Dates: start: 20170530, end: 20170926
  3. VENETOCLAX. [Suspect]
     Active Substance: VENETOCLAX
     Dosage: 400 MG
     Route: 048
     Dates: start: 20190524, end: 20191031
  4. VENETOCLAX. [Suspect]
     Active Substance: VENETOCLAX
     Dosage: 600 MG
     Route: 048
     Dates: start: 20170530, end: 20190523
  5. SALBUTAMOL [Concomitant]
     Active Substance: ALBUTEROL
     Indication: PNEUMONIA
     Dosage: UNK
     Route: 048
     Dates: start: 1997, end: 20181220
  6. MAGNESIUMHYDROXIDE [Concomitant]
     Indication: MUSCLE SPASMS
  7. MAGNESIUMHYDROXIDE [Concomitant]
     Indication: PROPHYLAXIS
  8. ADCAL D3 [Concomitant]
     Active Substance: CALCIUM CARBONATE\CHOLECALCIFEROL
     Indication: MINERAL SUPPLEMENTATION
     Dosage: 1 TABLET,1 IN 1 D
     Route: 048
  9. IMODIUM [Concomitant]
     Active Substance: LOPERAMIDE HYDROCHLORIDE
     Indication: ANTIDIARRHOEAL SUPPORTIVE CARE
  10. COTRIMOXAZOLE [Concomitant]
     Active Substance: SULFAMETHOXAZOLE\TRIMETHOPRIM
     Indication: INFECTION PROPHYLAXIS
     Dosage: 480 MG
     Route: 048
     Dates: start: 20191011
  11. SANDO K [Concomitant]
     Indication: MINERAL SUPPLEMENTATION
     Dosage: 4 TABLET (2 TABLET,2 IN 1 D)
     Route: 048
     Dates: start: 20170415, end: 20170415
  12. SANDO K [Concomitant]
     Dosage: 2 TABLET,AS REQUIRED
     Route: 048
     Dates: start: 20190523
  13. BONJELA [Concomitant]
     Active Substance: CETALKONIUM CHLORIDE\CHOLINE SALICYLATE\MENTHOL
     Indication: MOUTH ULCERATION
     Route: 048
     Dates: start: 20170619
  14. METOCLOPRAMIDE. [Concomitant]
     Active Substance: METOCLOPRAMIDE
     Indication: PROPHYLAXIS OF NAUSEA AND VOMITING
     Dosage: 10 MG
     Route: 048
     Dates: start: 20170410
  15. ZOMETA [Concomitant]
     Active Substance: ZOLEDRONIC ACID
     Indication: VERTEBRAL LESION
     Dosage: 4 MG, 1 DOSE 4 WEEKS
     Route: 042
     Dates: start: 201312
  16. DEXAMETHASONE. [Suspect]
     Active Substance: DEXAMETHASONE
     Indication: PLASMA CELL MYELOMA
     Dosage: 20 MG
     Route: 048
     Dates: start: 20171003, end: 20190511
  17. VELCADE [Suspect]
     Active Substance: BORTEZOMIB
     Dosage: CYCLE 1-8: ON DAYS 1, 4, 8 AND 11 OF 21 DAY CYCLE (2 MG)
     Route: 058
     Dates: start: 20170404, end: 20170512
  18. VELCADE [Suspect]
     Active Substance: BORTEZOMIB
     Dosage: CYCLE 9 AND BEYOND: ON DAYS 1, 8, 15 AND 22 OF 35 DAY CYCLE (1.05 MG)
     Route: 058
  19. IMODIUM [Concomitant]
     Active Substance: LOPERAMIDE HYDROCHLORIDE
     Indication: DIARRHOEA
     Route: 048
     Dates: start: 201705
  20. SANDO K [Concomitant]
     Indication: HYPOKALAEMIA
     Dosage: 1 TABLET,1 IN 1 D
     Route: 048
     Dates: start: 20180320, end: 20180320
  21. SANDO K [Concomitant]
     Dosage: 2 UNK
     Route: 048
     Dates: start: 20171231, end: 20180104
  22. SANDO K [Concomitant]
     Dosage: 3 UNK
     Route: 048
     Dates: start: 20190117, end: 20190506
  23. SANDO K [Concomitant]
     Dosage: 2 TABLET,1 IN 1 D
     Route: 048
     Dates: start: 20181224, end: 20181224
  24. SANDO K [Concomitant]
     Dosage: 1 UNK
     Route: 048
     Dates: start: 20181225, end: 20181227
  25. ZEROBASE [Concomitant]
     Active Substance: MINERAL OIL\PARAFFIN
     Indication: DRY SKIN
     Route: 061
     Dates: start: 20181225
  26. VENTOLIN [Concomitant]
     Active Substance: ALBUTEROL SULFATE
     Indication: ASTHMA
     Route: 048
  27. DEXAMETHASONE. [Suspect]
     Active Substance: DEXAMETHASONE
     Dosage: 12 MG
     Route: 048
     Dates: start: 20190524, end: 20191019
  28. VELCADE [Suspect]
     Active Substance: BORTEZOMIB
     Indication: PLASMA CELL MYELOMA
     Dosage: CYCLE 9 AND BEYOND: ON DAYS 1, 8, 15 AND 22 OF 35 DAY CYCLE (1.45 MG)
     Route: 058
     Dates: start: 20171003, end: 20190614
  29. LEVOFLOXACIN. [Concomitant]
     Active Substance: LEVOFLOXACIN
     Dosage: 500 MG
     Route: 048
     Dates: start: 20191011
  30. COTRIMOXAZOLE [Concomitant]
     Active Substance: SULFAMETHOXAZOLE\TRIMETHOPRIM
     Dosage: 960 MG
     Route: 048
     Dates: start: 20170419, end: 20170424
  31. COTRIMOXAZOLE [Concomitant]
     Active Substance: SULFAMETHOXAZOLE\TRIMETHOPRIM
     Dosage: 1920 MG
     Route: 048
     Dates: start: 20170417, end: 20170417
  32. PARACETAMOL [Concomitant]
     Active Substance: ACETAMINOPHEN
     Indication: ARTHRALGIA
     Dosage: UNK
     Route: 048
  33. PARACETAMOL [Concomitant]
     Active Substance: ACETAMINOPHEN
     Indication: PNEUMONIA
     Dosage: UNK
     Route: 048
     Dates: start: 20170410, end: 20170418
  34. FLUDROCORTISONE [Concomitant]
     Active Substance: FLUDROCORTISONE
     Indication: ORTHOSTATIC HYPOTENSION
     Dosage: 50 ?G, QD
     Route: 048
     Dates: start: 20190418
  35. DEXAMETHASONE. [Suspect]
     Active Substance: DEXAMETHASONE
     Dosage: 12 MG
     Route: 048
  36. SALBUTAMOL [Concomitant]
     Active Substance: ALBUTEROL
     Indication: ASTHMA
     Dosage: UNK
     Route: 065
  37. COTRIMOXAZOLE [Concomitant]
     Active Substance: SULFAMETHOXAZOLE\TRIMETHOPRIM
     Indication: PNEUMONIA
     Dosage: 1920 MG, QD
     Route: 048
     Dates: start: 20170419, end: 20170424
  38. COTRIMOXAZOLE [Concomitant]
     Active Substance: SULFAMETHOXAZOLE\TRIMETHOPRIM
     Indication: ANTIBIOTIC PROPHYLAXIS
     Dosage: 960 MG
     Route: 048
     Dates: start: 20170418, end: 20170418
  39. SANDO K [Concomitant]
     Dosage: 2 UNK
     Route: 048
     Dates: start: 20170412, end: 20170412
  40. SANDO K [Concomitant]
     Dosage: 6 TABLET (2 TABLET,3 IN 1 D)
     Route: 048
     Dates: start: 20170413, end: 20170414
  41. DIFFLAM [Concomitant]
     Active Substance: BENZYDAMINE HYDROCHLORIDE
     Indication: MOUTH ULCERATION
     Dosage: UNK
     Route: 048
     Dates: start: 20170619
  42. MAGNESIUMHYDROXIDE [Concomitant]
     Indication: HYPOMAGNESAEMIA
     Dosage: UNK
     Route: 065
  43. PARACETAMOL [Concomitant]
     Active Substance: ACETAMINOPHEN
     Indication: LOWER RESPIRATORY TRACT INFECTION
     Dosage: UNK
     Route: 065
  44. CETIRIZINE [Concomitant]
     Active Substance: CETIRIZINE HYDROCHLORIDE
     Indication: SEASONAL ALLERGY
     Route: 048
     Dates: start: 20170422
  45. BECLOMETASONE [Concomitant]
     Active Substance: BECLOMETHASONE DIPROPIONATE
     Indication: ASTHMA
     Dosage: 800 ?G, QD
     Route: 048
     Dates: start: 1997
  46. VENETOCLAX. [Suspect]
     Active Substance: VENETOCLAX
     Indication: PLASMA CELL MYELOMA
     Dosage: 400 MG, QD
     Route: 048
     Dates: start: 20191213
  47. CORSODYL [Concomitant]
     Active Substance: CHLORHEXIDINE GLUCONATE
     Indication: MOUTH ULCERATION
     Dosage: UNK
     Route: 048
  48. OMEPRAZOLE. [Concomitant]
     Active Substance: OMEPRAZOLE
     Dosage: 20 MG
     Route: 048
     Dates: start: 201609, end: 201710
  49. COTRIMOXAZOLE [Concomitant]
     Active Substance: SULFAMETHOXAZOLE\TRIMETHOPRIM
     Dosage: 480 MG
     Route: 048
     Dates: start: 20190322, end: 20191004
  50. SANDO K [Concomitant]
     Dosage: 3 UNK
     Route: 048
     Dates: start: 20180321, end: 20180325
  51. PARACETAMOL [Concomitant]
     Active Substance: ACETAMINOPHEN
     Indication: PAIN IN EXTREMITY
     Dosage: UNK
     Route: 048
     Dates: start: 20181221, end: 20181228
  52. METOCLOPRAMIDE. [Concomitant]
     Active Substance: METOCLOPRAMIDE
     Indication: VOMITING
     Route: 065
  53. VISCOTEARS [Concomitant]
     Active Substance: CARBOMER
     Indication: DRY EYE
     Route: 061
     Dates: start: 20181225
  54. GAVISCON [Concomitant]
     Active Substance: ALUMINUM HYDROXIDE\MAGNESIUM CARBONATE
     Indication: FLATULENCE
     Route: 048
     Dates: start: 20170626
  55. VENETOCLAX. [Suspect]
     Active Substance: VENETOCLAX
     Dosage: 800 MG
     Route: 048
     Dates: start: 20170404, end: 20170522
  56. SALBUTAMOL [Concomitant]
     Active Substance: ALBUTEROL
     Indication: LOWER RESPIRATORY TRACT INFECTION
     Dosage: UNK
     Route: 055
     Dates: start: 20181221
  57. LEVOFLOXACIN. [Concomitant]
     Active Substance: LEVOFLOXACIN
     Indication: ANTIBIOTIC PROPHYLAXIS
     Dosage: 500 MG, QD
     Route: 048
     Dates: start: 20190322, end: 20191004
  58. CORSODYL [Concomitant]
     Active Substance: CHLORHEXIDINE GLUCONATE
     Dosage: UNK
     Route: 065
  59. LAXIDO [Concomitant]
     Active Substance: POLYETHYLENE GLYCOL 3350\POTASSIUM CHLORIDE\SODIUM BICARBONATE\SODIUM CHLORIDE
     Indication: CONSTIPATION
     Route: 048
     Dates: start: 20190626
  60. DEXAMETHASONE. [Suspect]
     Active Substance: DEXAMETHASONE
     Dosage: 20 MG
     Route: 048
     Dates: start: 20170404, end: 20170927
  61. SALBUTAMOL [Concomitant]
     Active Substance: ALBUTEROL
     Indication: DYSPNOEA
  62. OMEPRAZOLE. [Concomitant]
     Active Substance: OMEPRAZOLE
     Indication: HIATUS HERNIA
     Dosage: 20 MG, QD
     Route: 048
     Dates: start: 20181228
  63. OMEPRAZOLE. [Concomitant]
     Active Substance: OMEPRAZOLE
     Indication: OESOPHAGEAL ULCER
     Dosage: 40 MG
     Route: 048
     Dates: start: 201710, end: 20181224
  64. DIFFLAM [Concomitant]
     Active Substance: BENZYDAMINE HYDROCHLORIDE
     Dosage: UNK
     Route: 065

REACTIONS (1)
  - Rhinovirus infection [Recovered/Resolved]

NARRATIVE: CASE EVENT DATE: 20191031
